FAERS Safety Report 5851249-2 (Version None)
Quarter: 2008Q3

REPORT INFORMATION
  Report Type: 
  Country: None (occurrence: None)
  Receive Date: 20080731
  Receipt Date: 20080414
  Transmission Date: 20090109
  Serious: No
  Sender: FDA-Public Use
  Company Number: 2005PV001366

PATIENT
  Age: 66 Year
  Sex: Female
  Weight: 83.9 kg

DRUGS (15)
  1. EXENATIDE(EXENATIDE) PEN,DISPOSABLE [Suspect]
     Indication: TYPE 2 DIABETES MELLITUS
     Dosage: SEE IMAGE
     Route: 058
     Dates: start: 20050601, end: 20050725
  2. EXENATIDE(EXENATIDE) PEN,DISPOSABLE [Suspect]
     Indication: TYPE 2 DIABETES MELLITUS
     Dosage: SEE IMAGE
     Route: 058
     Dates: start: 20050101, end: 20051101
  3. EXENATIDE(EXENATIDE) PEN,DISPOSABLE [Suspect]
     Indication: TYPE 2 DIABETES MELLITUS
     Dosage: SEE IMAGE
     Route: 058
     Dates: start: 20051101
  4. EXENATIDE(EXENATIDE) PEN,DISPOSABLE [Suspect]
     Indication: TYPE 2 DIABETES MELLITUS
     Dosage: SEE IMAGE
     Route: 058
     Dates: start: 20051101
  5. LOZOL [Concomitant]
  6. TENORMIN [Concomitant]
  7. GLUCOTROL [Concomitant]
  8. GLUCOPHAGE [Concomitant]
  9. CLARINEX [Concomitant]
  10. BENICAR [Concomitant]
  11. LANTUS [Concomitant]
  12. ATENOLOL [Concomitant]
  13. NORVASC [Concomitant]
  14. ALISKIREN (ALISKIREN) [Concomitant]
  15. ORAL ANTIDIABETICS [Concomitant]

REACTIONS (10)
  - BLOOD GLUCOSE DECREASED [None]
  - BLOOD GLUCOSE INCREASED [None]
  - BLOOD PRESSURE INCREASED [None]
  - BREAST CANCER [None]
  - DIZZINESS [None]
  - EARLY SATIETY [None]
  - FALL [None]
  - FEELING JITTERY [None]
  - NAUSEA [None]
  - VOMITING [None]
